FAERS Safety Report 20363632 (Version 3)
Quarter: 2022Q1

REPORT INFORMATION
  Report Type: Spontaneous
  Country: US (occurrence: US)
  Receive Date: 20220121
  Receipt Date: 20220318
  Transmission Date: 20220424
  Serious: Yes (Hospitalization, Other)
  Sender: FDA-Public Use
  Company Number: US-BIOGEN-2022BI01088671

PATIENT
  Sex: Female

DRUGS (1)
  1. TYSABRI [Suspect]
     Active Substance: NATALIZUMAB
     Indication: Multiple sclerosis
     Route: 065
     Dates: start: 20130531, end: 20200723

REACTIONS (5)
  - Procedural pneumothorax [Not Recovered/Not Resolved]
  - Benign renal neoplasm [Recovered/Resolved]
  - Adnexal torsion [Recovered/Resolved]
  - Pulmonary mass [Unknown]
  - Ovarian cyst [Recovered/Resolved]
